FAERS Safety Report 15352760 (Version 2)
Quarter: 2018Q3

REPORT INFORMATION
  Report Type: Spontaneous
  Country: FR (occurrence: FR)
  Receive Date: 20180905
  Receipt Date: 20180912
  Transmission Date: 20181010
  Serious: Yes (Other)
  Sender: FDA-Public Use
  Company Number: PHHY2018FR090264

PATIENT
  Age: 54 Year
  Sex: Male

DRUGS (3)
  1. TACROLIMUS. [Suspect]
     Active Substance: TACROLIMUS
     Indication: RENAL TRANSPLANT
     Dosage: 5.00 OT, QD
     Route: 065
     Dates: start: 20170627
  2. TACROLIMUS. [Suspect]
     Active Substance: TACROLIMUS
     Dosage: 5.50 OT, QD
     Route: 065
     Dates: start: 20170927
  3. IMUREL [Concomitant]
     Active Substance: AZATHIOPRINE SODIUM
     Indication: IMMUNOSUPPRESSANT DRUG THERAPY
     Dosage: 75 (UNIT WAS NOT REPORTED), ONCE DAILY
     Route: 065
     Dates: start: 20170427

REACTIONS (3)
  - Skin lesion [Recovered/Resolved]
  - Skin lesion [Recovered/Resolved]
  - Malignant melanoma [Not Recovered/Not Resolved]

NARRATIVE: CASE EVENT DATE: 20170926
